FAERS Safety Report 25852436 (Version 2)
Quarter: 2025Q4

REPORT INFORMATION
  Report Type: Report from Study
  Country: CA (occurrence: CA)
  Receive Date: 20250926
  Receipt Date: 20251008
  Transmission Date: 20260118
  Serious: Yes (Other)
  Sender: UCB
  Company Number: CA-UCBSA-2025059572

PATIENT
  Age: 26 Year
  Sex: Female

DRUGS (2)
  1. CERTOLIZUMAB PEGOL [Suspect]
     Active Substance: CERTOLIZUMAB PEGOL
     Indication: Ankylosing spondylitis
     Dosage: UNK UNK, WEEKLY (QW)
     Dates: start: 20190305
  2. CERTOLIZUMAB PEGOL [Suspect]
     Active Substance: CERTOLIZUMAB PEGOL
     Dosage: 200 MILLIGRAM, WEEKLY (QW)
     Route: 058
     Dates: start: 20250916

REACTIONS (3)
  - Ankylosing spondylitis [Unknown]
  - Therapeutic response shortened [Unknown]
  - Off label use [Unknown]

NARRATIVE: CASE EVENT DATE: 20250911
